FAERS Safety Report 13746946 (Version 4)
Quarter: 2018Q1

REPORT INFORMATION
  Report Type: Report from Study
  Country: BR (occurrence: BR)
  Receive Date: 20170712
  Receipt Date: 20180109
  Transmission Date: 20180508
  Serious: Yes (Hospitalization, Other)
  Sender: FDA-Public Use
  Company Number: PHHY2017BR097914

PATIENT
  Age: 85 Year
  Sex: Female
  Weight: 42 kg

DRUGS (8)
  1. ONBREZ BREEZHALER [Suspect]
     Active Substance: INDACATEROL
     Indication: EMPHYSEMA
     Route: 055
  2. BUSONID [Concomitant]
     Active Substance: BUDESONIDE
     Indication: EMPHYSEMA
     Dosage: 1 DF (400 UG), QD
     Route: 055
     Dates: start: 2017
  3. SERTRALINE [Suspect]
     Active Substance: SERTRALINE HYDROCHLORIDE
     Indication: DEPRESSION
     Route: 065
  4. MEMANTINE HYDROCHLORIDE. [Concomitant]
     Active Substance: MEMANTINE HYDROCHLORIDE
     Indication: PROPHYLAXIS
     Dosage: 2 DF, QD (START DATE: APPROX. 1 YEAR)
     Route: 048
  5. ULTIBRO BREEZHALER [Suspect]
     Active Substance: GLYCOPYRRONIUM\INDACATEROL
     Indication: EMPHYSEMA
     Dosage: 1 DF (GLYCOPYRRONIUM BROMIDE 50 UG/ INDACATEROL 110 UG), QD
     Route: 055
     Dates: start: 2017
  6. BRINTELLIX [Concomitant]
     Active Substance: VORTIOXETINE HYDROBROMIDE
     Indication: DEPRESSION
     Dosage: 1 DF (5 MG), QD
     Route: 048
     Dates: start: 201705
  7. ASA [Concomitant]
     Active Substance: ASPIRIN
     Indication: ARRHYTHMIA
     Dosage: 1 DF, QD (START DATE: APPROXIMATELY 1 YEAR)
     Route: 048
  8. ULTIBRO BREEZHALER [Suspect]
     Active Substance: GLYCOPYRRONIUM\INDACATEROL
     Indication: CHRONIC OBSTRUCTIVE PULMONARY DISEASE

REACTIONS (17)
  - Pneumonia [Recovered/Resolved]
  - Abnormal behaviour [Recovered/Resolved]
  - Sensitivity to weather change [Recovered/Resolved]
  - Deafness [Unknown]
  - Agitation [Unknown]
  - Dementia [Unknown]
  - Distractibility [Unknown]
  - Urinary tract infection [Recovered/Resolved]
  - Concomitant disease aggravated [Unknown]
  - Depression [Unknown]
  - Malaise [Unknown]
  - Dysstasia [Recovered/Resolved]
  - Cough [Recovered/Resolved]
  - Aphasia [Unknown]
  - General physical health deterioration [Recovered/Resolved]
  - Visual impairment [Not Recovered/Not Resolved]
  - Eating disorder [Recovered/Resolved]

NARRATIVE: CASE EVENT DATE: 201705
